FAERS Safety Report 22949912 (Version 2)
Quarter: 2023Q4

REPORT INFORMATION
  Report Type: Spontaneous
  Country: JP (occurrence: JP)
  Receive Date: 20230915
  Receipt Date: 20231220
  Transmission Date: 20240109
  Serious: Yes (Other)
  Sender: FDA-Public Use
  Company Number: JP-DSJP-DSJ-2023-137463

PATIENT
  Age: 77 Year
  Sex: Male
  Weight: 77 kg

DRUGS (1)
  1. EDOXABAN TOSYLATE [Suspect]
     Active Substance: EDOXABAN TOSYLATE
     Indication: Deep vein thrombosis
     Dosage: 60MG/DAY
     Route: 048

REACTIONS (3)
  - Renal impairment [Not Recovered/Not Resolved]
  - Pleural effusion [Not Recovered/Not Resolved]
  - Prescribed overdose [Unknown]
